FAERS Safety Report 23217385 (Version 1)
Quarter: 2023Q4

REPORT INFORMATION
  Report Type: Spontaneous
  Country: US (occurrence: None)
  Receive Date: 20231121
  Receipt Date: 20231121
  Transmission Date: 20240110
  Serious: Yes (Life-Threatening, Hospitalization, Disabling)
  Sender: FDA-Public Use
  Company Number: None

PATIENT
  Age: 45 Year
  Sex: Female
  Weight: 60.75 kg

DRUGS (1)
  1. KENALOG [Suspect]
     Active Substance: TRIAMCINOLONE ACETONIDE
     Indication: Asthma
     Dates: start: 20230814

REACTIONS (9)
  - Feeling abnormal [None]
  - Suicidal behaviour [None]
  - Impaired driving ability [None]
  - Panic reaction [None]
  - Thinking abnormal [None]
  - Adrenal disorder [None]
  - Feeding disorder [None]
  - Insomnia [None]
  - Loss of personal independence in daily activities [None]

NARRATIVE: CASE EVENT DATE: 20230814
